FAERS Safety Report 7075611-8 (Version None)
Quarter: 2010Q4

REPORT INFORMATION
  Report Type: 
  Country: None (occurrence: None)
  Receive Date: 20101030
  Receipt Date: 20101011
  Transmission Date: 20110411
  Serious: No
  Sender: FDA-Public Use
  Company Number: US-WYE-H18127410

PATIENT
  Sex: Female

DRUGS (6)
  1. PRISTIQ [Suspect]
     Indication: WEIGHT DECREASED
     Route: 048
     Dates: start: 20100911
  2. PRISTIQ [Suspect]
     Indication: FEELING GUILTY
  3. PRISTIQ [Suspect]
     Indication: INSOMNIA
  4. PRISTIQ [Suspect]
     Indication: DEPRESSED MOOD
  5. PRISTIQ [Suspect]
     Indication: CRYING
  6. VITAMIN D3 [Concomitant]

REACTIONS (1)
  - DRUG INEFFECTIVE [None]
